FAERS Safety Report 5017581-X (Version None)
Quarter: 2006Q2

REPORT INFORMATION
  Report Type: 
  Country: None (occurrence: None)
  Receive Date: 20060601
  Receipt Date: 20060601
  Transmission Date: 20061013
  Serious: Yes (Hospitalization, Other)
  Sender: FDA-Public Use
  Company Number: None

PATIENT
  Sex: Male
  Weight: 99.7913 kg

DRUGS (2)
  1. BIVALIRUDIN   .75MG/KG BOLUS FOLLOWED BY   ANGIOMAX [Suspect]
     Indication: ANTICOAGULANT THERAPY
     Dosage: SEE IMAGE
     Dates: start: 20060502, end: 20060502
  2. INTEGRILIN [Suspect]
     Indication: ANTIPLATELET THERAPY
     Dosage: SEE IMAGE
     Route: 041
     Dates: start: 20060502, end: 20060503

REACTIONS (3)
  - DIARRHOEA [None]
  - HAEMATOCRIT DECREASED [None]
  - MELAENA [None]
